FAERS Safety Report 11336956 (Version 2)
Quarter: 2016Q3

REPORT INFORMATION
  Report Type: Spontaneous
  Country: US (occurrence: US)
  Receive Date: 20150804
  Receipt Date: 20160927
  Transmission Date: 20161109
  Serious: No
  Sender: FDA-Public Use
  Company Number: US-ASTRAZENECA-2015SE72506

PATIENT
  Sex: Female
  Weight: 71.7 kg

DRUGS (2)
  1. BYETTA [Suspect]
     Active Substance: EXENATIDE
     Route: 065
  2. BYDUREON [Suspect]
     Active Substance: EXENATIDE
     Indication: DIABETES MELLITUS
     Route: 058

REACTIONS (7)
  - Injection site pain [Unknown]
  - Product quality issue [Unknown]
  - Underdose [Unknown]
  - Injection site haemorrhage [Unknown]
  - Skin discolouration [Unknown]
  - Intentional product misuse [Unknown]
  - Injection site extravasation [Unknown]
